FAERS Safety Report 10627462 (Version 1)
Quarter: 2014Q4

REPORT INFORMATION
  Report Type: Spontaneous
  Country: DE (occurrence: DE)
  Receive Date: 20141205
  Receipt Date: 20141205
  Transmission Date: 20150529
  Serious: Yes (Other)
  Sender: FDA-Public Use
  Company Number: GXKR2014DE004490

PATIENT
  Age: 35 Year
  Sex: Female

DRUGS (1)
  1. CLINDAHEXAL [Suspect]
     Active Substance: CLINDAMYCIN HYDROCHLORIDE
     Indication: SINUSITIS
     Dosage: 450 MG, TID
     Route: 048
     Dates: start: 20141125

REACTIONS (5)
  - Dysphagia [Unknown]
  - Oesophageal pain [Unknown]
  - Oesophageal disorder [Unknown]
  - Oropharyngeal swelling [Unknown]
  - Paraesthesia oral [Recovering/Resolving]

NARRATIVE: CASE EVENT DATE: 20141125
